FAERS Safety Report 9944444 (Version 1)
Quarter: 2014Q1

REPORT INFORMATION
  Report Type: Spontaneous
  Country: US (occurrence: US)
  Receive Date: 20140303
  Receipt Date: 20140303
  Transmission Date: 20141002
  Serious: No
  Sender: FDA-Public Use
  Company Number: US-ABBVIE-13P-163-1051220-00

PATIENT
  Sex: 0

DRUGS (4)
  1. HUMIRA [Suspect]
     Indication: CROHN^S DISEASE
     Dosage: LOADING DOSE
     Dates: start: 201212, end: 201212
  2. HUMIRA [Suspect]
     Dates: start: 201301
  3. REMICADE LYOPHILISAT [Suspect]
     Indication: PRODUCT USED FOR UNKNOWN INDICATION
  4. LIALDA [Concomitant]
     Indication: CROHN^S DISEASE

REACTIONS (3)
  - Urticaria [Not Recovered/Not Resolved]
  - Sinusitis [Recovered/Resolved]
  - Ear discomfort [Not Recovered/Not Resolved]
